FAERS Safety Report 9160871 (Version 1)
Quarter: 2013Q1

REPORT INFORMATION
  Report Type: Spontaneous
  Country: BE (occurrence: BE)
  Receive Date: 20130313
  Receipt Date: 20130313
  Transmission Date: 20140127
  Serious: Yes (Death)
  Sender: FDA-Public Use
  Company Number: BE-BAXTER-2013BAX008956

PATIENT
  Sex: Female

DRUGS (1)
  1. OLIMEL N7 [Suspect]
     Indication: PARENTERAL NUTRITION
     Route: 065

REACTIONS (1)
  - Ovarian cancer [Fatal]
